FAERS Safety Report 11441885 (Version 1)
Quarter: 2015Q3

REPORT INFORMATION
  Report Type: Spontaneous
  Country: BR (occurrence: BR)
  Receive Date: 20150901
  Receipt Date: 20150901
  Transmission Date: 20151125
  Serious: Yes (Other)
  Sender: FDA-Public Use
  Company Number: BR-DRREDDYS-GPV/BRA/15/0050257

PATIENT
  Sex: Male

DRUGS (10)
  1. SPIRIVA [Suspect]
     Active Substance: TIOTROPIUM BROMIDE MONOHYDRATE
     Indication: LUNG DISORDER
  2. SUSTRATE [Suspect]
     Active Substance: PROPATYL NITRATE
     Indication: BLOOD PRESSURE MANAGEMENT
     Route: 048
  3. GLIMEPRID [Suspect]
     Active Substance: GLIMEPIRIDE
     Indication: DIABETES MELLITUS
     Route: 048
  4. CLOPIDOGREL [Suspect]
     Active Substance: CLOPIDOGREL BISULFATE
     Indication: CARDIAC DISORDER
     Route: 048
  5. AVODART [Suspect]
     Active Substance: DUTASTERIDE
     Indication: BENIGN PROSTATIC HYPERPLASIA
     Route: 048
  6. ALOPURINOL [Suspect]
     Active Substance: ALLOPURINOL
     Indication: BLOOD URIC ACID
     Route: 048
  7. SERETIDE [Suspect]
     Active Substance: FLUTICASONE FUROATE\SALMETEROL XINAFOATE
     Indication: LUNG DISORDER
  8. PRIMAL [Suspect]
     Active Substance: AMBAZONE
     Indication: LUNG DISORDER
  9. ATORVASTATIN [Suspect]
     Active Substance: ATORVASTATIN
     Indication: CARDIAC DISORDER
     Route: 048
  10. BAMIFIX [Suspect]
     Active Substance: BAMIFYLLINE HYDROCHLORIDE
     Indication: LUNG DISORDER
     Route: 048

REACTIONS (5)
  - Weight decreased [Unknown]
  - Cerebrovascular accident [Unknown]
  - Gait disturbance [Unknown]
  - Fall [Unknown]
  - Decreased appetite [Unknown]
